FAERS Safety Report 11613747 (Version 1)
Quarter: 2015Q4

REPORT INFORMATION
  Report Type: Report from Study
  Country: AT (occurrence: AT)
  Receive Date: 20151008
  Receipt Date: 20151008
  Transmission Date: 20160304
  Serious: Yes (Life-Threatening, Hospitalization)
  Sender: FDA-Public Use
  Company Number: AT-TEVA-599752USA

PATIENT
  Age: 41 Year
  Sex: Male

DRUGS (11)
  1. ADASUVE [Suspect]
     Active Substance: LOXAPINE
     Dosage: ONCE
     Route: 055
     Dates: start: 20150510, end: 20150510
  2. CISORDINOL [Concomitant]
     Active Substance: ZUCLOPENTHIXOL
     Indication: SCHIZOAFFECTIVE DISORDER
     Route: 030
  3. PANTOLOC [Concomitant]
     Active Substance: PANTOPRAZOLE SODIUM
     Indication: GASTRITIS
     Dosage: 40 MILLIGRAM DAILY;
     Route: 048
     Dates: start: 20150428
  4. SYCREST [Concomitant]
     Active Substance: ASENAPINE MALEATE
     Indication: SCHIZOAFFECTIVE DISORDER
     Dosage: 10 MILLIGRAM DAILY;
     Route: 048
     Dates: start: 20150507
  5. ADASUVE [Suspect]
     Active Substance: LOXAPINE
     Indication: AGITATION
     Dosage: 2 TIMES
     Route: 055
     Dates: start: 20150504, end: 20150504
  6. AKINETON [Concomitant]
     Active Substance: BIPERIDEN HYDROCHLORIDE
     Dosage: 8 MILLIGRAM DAILY;
     Route: 048
  7. LYRICA [Concomitant]
     Active Substance: PREGABALIN
     Indication: GENERALISED ANXIETY DISORDER
     Dosage: 600 MILLIGRAM DAILY;
     Route: 048
  8. DEPAKINE [Concomitant]
     Active Substance: VALPROATE SODIUM
     Indication: SCHIZOAFFECTIVE DISORDER
     Dosage: 1500 MILLIGRAM DAILY;
     Route: 048
  9. ADASUVE [Suspect]
     Active Substance: LOXAPINE
     Dosage: ONCE
     Route: 055
     Dates: start: 20150505, end: 20150505
  10. ZYPREXA [Concomitant]
     Active Substance: OLANZAPINE
     Indication: SCHIZOAFFECTIVE DISORDER
     Dosage: 20 MILLIGRAM DAILY;
     Route: 048
     Dates: start: 2012
  11. RIVOTRIL [Concomitant]
     Active Substance: CLONAZEPAM
     Indication: SCHIZOAFFECTIVE DISORDER
     Dosage: 2 MILLIGRAM DAILY;
     Route: 048

REACTIONS (1)
  - Pulmonary embolism [Recovered/Resolved]

NARRATIVE: CASE EVENT DATE: 20150511
